FAERS Safety Report 10955526 (Version 1)
Quarter: 2015Q1

REPORT INFORMATION
  Report Type: Spontaneous
  Country: US (occurrence: None)
  Receive Date: 20150325
  Receipt Date: 20150325
  Transmission Date: 20150721
  Serious: Yes (Hospitalization)
  Sender: FDA-Public Use
  Company Number: None

PATIENT
  Age: 53 Year
  Sex: Male
  Weight: 93.03 kg

DRUGS (1)
  1. GEMCITABINE HYDROCHLORIDE. [Suspect]
     Active Substance: GEMCITABINE HYDROCHLORIDE
     Dates: end: 20150312

REACTIONS (7)
  - Headache [None]
  - Ascites [None]
  - Abdominal pain [None]
  - Nausea [None]
  - Neutrophil count decreased [None]
  - Diarrhoea [None]
  - Peritonitis bacterial [None]

NARRATIVE: CASE EVENT DATE: 20150316
